FAERS Safety Report 5766646-3 (Version None)
Quarter: 2008Q2

REPORT INFORMATION
  Report Type: 
  Country: None (occurrence: None)
  Receive Date: 20080612
  Receipt Date: 20080530
  Transmission Date: 20081010
  Serious: Yes (Hospitalization)
  Sender: FDA-Public Use
  Company Number: GB-NOVOPROD-258953

PATIENT
  Sex: Female
  Weight: 101.3 kg

DRUGS (7)
  1. INSULIN DETEMIR FLEXPEN [Suspect]
     Indication: TYPE 1 DIABETES MELLITUS
     Dosage: 32 IU, QD
     Route: 058
     Dates: start: 20061117
  2. AERX SOLUTION 2.6 MG/STRIP [Suspect]
     Indication: TYPE 1 DIABETES MELLITUS
     Dosage: 24 IU, QD
     Route: 055
     Dates: start: 20061117, end: 20061204
  3. AERX SOLUTION 2.6 MG/STRIP [Suspect]
     Dosage: 24 IU, QD
     Route: 055
     Dates: start: 20061213
  4. PREGABALIN [Concomitant]
     Dosage: 800 MG, QD
     Route: 048
     Dates: start: 20050608
  5. IMPRIL [Concomitant]
     Dosage: 25 MG, QD
     Route: 048
     Dates: start: 20050608
  6. RABEPRAZOLE SODIUM [Concomitant]
     Dosage: 20 MG, QD
     Route: 048
     Dates: start: 20051101
  7. LIPITOR [Concomitant]
     Dosage: 20 MG, QD
     Route: 048
     Dates: start: 20021205

REACTIONS (1)
  - BUNDLE BRANCH BLOCK LEFT [None]
